FAERS Safety Report 8539820-0 (Version None)
Quarter: 2012Q3

REPORT INFORMATION
  Report Type: 
  Country: None (occurrence: None)
  Receive Date: 20120726
  Receipt Date: 20120515
  Transmission Date: 20120928
  Serious: No
  Sender: FDA-Public Use
  Company Number: US-MYLANLABS-2012S1010202

PATIENT
  Age: 65 Year
  Sex: Male

DRUGS (1)
  1. TAMSULOSIN HCL [Suspect]
     Indication: BENIGN PROSTATIC HYPERPLASIA
     Route: 048
     Dates: start: 20110101

REACTIONS (2)
  - DYSURIA [None]
  - DRUG EFFECT DECREASED [None]
